FAERS Safety Report 24683098 (Version 3)
Quarter: 2025Q3

REPORT INFORMATION
  Report Type: Report from Study
  Country: CA (occurrence: CA)
  Receive Date: 20241201
  Receipt Date: 20250809
  Transmission Date: 20251021
  Serious: Yes (Other)
  Sender: ALEXION PHARMACEUTICALS
  Company Number: CA-AstraZeneca-2024A117125

PATIENT
  Sex: Female

DRUGS (10)
  1. BENRALIZUMAB [Suspect]
     Active Substance: BENRALIZUMAB
     Indication: Asthma
  2. VITAMIN D [Concomitant]
     Active Substance: VITAMIN D NOS
  3. NIFEDIPINE [Concomitant]
     Active Substance: NIFEDIPINE
  4. DIOVAN [Concomitant]
     Active Substance: VALSARTAN
  5. PANTOPRAZOLE MAGNESIUM [Concomitant]
     Active Substance: PANTOPRAZOLE MAGNESIUM
  6. PROBIOTICS NOS [Concomitant]
     Active Substance: PROBIOTICS NOS
  7. BREEZE [Concomitant]
     Dosage: 60 MICROGRAM, QD
  8. FLUTICASONE FUROATE\VILANTEROL TRIFENATATE [Concomitant]
     Active Substance: FLUTICASONE FUROATE\VILANTEROL TRIFENATATE
  9. VITAMIN B12 [Concomitant]
     Active Substance: CYANOCOBALAMIN
  10. REACTINE [Concomitant]

REACTIONS (5)
  - Breast cancer [Unknown]
  - White blood cell count decreased [Unknown]
  - Pneumothorax [Unknown]
  - Asthma [Unknown]
  - Dyspnoea [Unknown]
